FAERS Safety Report 9792345 (Version 1)
Quarter: 2014Q1

REPORT INFORMATION
  Report Type: Spontaneous
  Country: US (occurrence: US)
  Receive Date: 20140102
  Receipt Date: 20140102
  Transmission Date: 20141002
  Serious: No
  Sender: FDA-Public Use
  Company Number: US-BIOGENIDEC-2013BI123362

PATIENT
  Age: 58 Year
  Sex: Female

DRUGS (9)
  1. TECFIDERA [Suspect]
     Indication: MULTIPLE SCLEROSIS
     Route: 048
  2. XANAX [Concomitant]
  3. OXYBUTYNIN [Concomitant]
  4. ASPIRIN [Concomitant]
  5. OXYCODONE [Concomitant]
  6. AMPYRA [Concomitant]
  7. BIOTIN [Concomitant]
  8. FERROUS SULFATE [Concomitant]
  9. VITAMIN D [Concomitant]

REACTIONS (2)
  - Gait disturbance [Unknown]
  - Nausea [Unknown]
